FAERS Safety Report 10247294 (Version 1)
Quarter: 2014Q2

REPORT INFORMATION
  Report Type: Spontaneous
  Country: DE (occurrence: DE)
  Receive Date: 20140619
  Receipt Date: 20140619
  Transmission Date: 20141212
  Serious: Yes (Hospitalization, Other)
  Sender: FDA-Public Use
  Company Number: DE-GLAXOSMITHKLINE-B1005377A

PATIENT
  Age: 41 Year
  Sex: Male

DRUGS (2)
  1. BUPROPION [Suspect]
     Indication: DEPRESSION
     Dosage: 300MG PER DAY
     Route: 065
  2. VENLAFAXINE [Suspect]
     Indication: DEPRESSION
     Route: 065

REACTIONS (7)
  - Status epilepticus [Recovered/Resolved]
  - Merycism [Unknown]
  - Affective disorder [Unknown]
  - Decreased interest [Unknown]
  - Fatigue [Unknown]
  - Suicidal ideation [Unknown]
  - Sexual dysfunction [Unknown]
